FAERS Safety Report 6913969-8 (Version None)
Quarter: 2010Q3

REPORT INFORMATION
  Report Type: 
  Country: None (occurrence: None)
  Receive Date: 20100809
  Receipt Date: 20100726
  Transmission Date: 20110219
  Serious: Yes (Other)
  Sender: FDA-Public Use
  Company Number: PHHY2010MX49664

PATIENT
  Age: 66 Year
  Sex: Male

DRUGS (7)
  1. DIOVAN [Suspect]
     Indication: HYPERTENSION
     Dosage: ONE TABLET (160 MG) PER DAY
  2. DIOVAN [Suspect]
     Dosage: ONE TABLET (80 MG) PER DAY
     Dates: start: 20050101
  3. OMEPRAZOLE [Concomitant]
     Dosage: ONE TABLET PER DAY
     Dates: start: 20020101
  4. NOLOTIL [Concomitant]
     Dosage: 2 TABLETS PER DAY
     Dates: start: 20100701
  5. TAFIL [Concomitant]
     Dosage: ONE TABLET PER DAY
     Dates: start: 20100701
  6. MYOLASTAN [Concomitant]
     Dosage: ONE TABLET PER DAY
     Dates: start: 20100701
  7. PROPAFENONE [Concomitant]
     Dosage: ONE TABLET PER DAY
     Dates: start: 20010701

REACTIONS (6)
  - ARRHYTHMIA [None]
  - DYSPNOEA [None]
  - FEELING ABNORMAL [None]
  - HYPERHIDROSIS [None]
  - MUSCLE CONTRACTIONS INVOLUNTARY [None]
  - SYNCOPE [None]
